FAERS Safety Report 16291487 (Version 3)
Quarter: 2019Q3

REPORT INFORMATION
  Report Type: Spontaneous
  Country: JP (occurrence: JP)
  Receive Date: 20190509
  Receipt Date: 20190816
  Transmission Date: 20191004
  Serious: Yes (Other)
  Sender: FDA-Public Use
  Company Number: JP-ELI_LILLY_AND_COMPANY-JP201905001455

PATIENT
  Age: 59 Year
  Sex: Male

DRUGS (4)
  1. ERBITUX [Suspect]
     Active Substance: CETUXIMAB
     Indication: TONGUE CANCER METASTATIC
     Dosage: 400 MG/M2, UNK
     Route: 041
     Dates: start: 20160712
  2. FLUOROURACIL 5 FU [Concomitant]
     Active Substance: FLUOROURACIL
     Indication: TONGUE CANCER METASTATIC
     Dosage: 1000 MG/M2, Q3W
     Route: 041
     Dates: start: 20160712
  3. ERBITUX [Suspect]
     Active Substance: CETUXIMAB
     Dosage: 250 MG/M2, WEEKLY (1/W)
     Route: 041
     Dates: start: 20160719
  4. CISPLATIN. [Concomitant]
     Active Substance: CISPLATIN
     Indication: TONGUE CANCER METASTATIC
     Dosage: 100 MG/M2, Q3W
     Route: 041
     Dates: start: 20160712

REACTIONS (4)
  - Mental disorder [Unknown]
  - Pneumonia aspiration [Recovering/Resolving]
  - Leukopenia [Recovering/Resolving]
  - Cutaneous symptom [Recovering/Resolving]

NARRATIVE: CASE EVENT DATE: 20160727
